FAERS Safety Report 13058996 (Version 1)
Quarter: 2016Q4

REPORT INFORMATION
  Report Type: Spontaneous
  Country: IT (occurrence: IT)
  Receive Date: 20161223
  Receipt Date: 20161223
  Transmission Date: 20170207
  Serious: Yes (Hospitalization, Other)
  Sender: FDA-Public Use
  Company Number: IT-GLAXOSMITHKLINE-IT2016GSK189292

PATIENT
  Age: 78 Year
  Sex: Male

DRUGS (8)
  1. ASA [Suspect]
     Active Substance: ASPIRIN
     Indication: ATRIAL FIBRILLATION
     Dosage: 1 DF, QD
     Route: 048
     Dates: start: 20161011, end: 20161116
  2. ALLOPURINOL. [Concomitant]
     Active Substance: ALLOPURINOL
  3. DILZENE [Concomitant]
     Active Substance: DILTIAZEM HYDROCHLORIDE
  4. ATENOLOL. [Concomitant]
     Active Substance: ATENOLOL
  5. VOLTAREN [Suspect]
     Active Substance: DICLOFENAC SODIUM
     Indication: HEADACHE
     Dosage: 1 DF, QD
     Route: 048
     Dates: start: 20161106, end: 20161116
  6. TRIATEC [Concomitant]
     Active Substance: RAMIPRIL
  7. PRADAXA [Suspect]
     Active Substance: DABIGATRAN ETEXILATE MESYLATE
     Indication: ATRIAL FIBRILLATION
     Dosage: 2 DF, QD
     Route: 048
     Dates: start: 20161011
  8. GLIBOMET [Concomitant]
     Active Substance: GLYBURIDE\METFORMIN HYDROCHLORIDE

REACTIONS (5)
  - Headache [Unknown]
  - Syncope [Unknown]
  - Confusional state [Unknown]
  - Subdural haemorrhage [Unknown]
  - Somnolence [Unknown]

NARRATIVE: CASE EVENT DATE: 20161116
